FAERS Safety Report 20138948 (Version 1)
Quarter: 2021Q4

REPORT INFORMATION
  Report Type: Spontaneous
  Country: US (occurrence: US)
  Receive Date: 20211202
  Receipt Date: 20211202
  Transmission Date: 20220303
  Serious: Yes (Other)
  Sender: FDA-Public Use
  Company Number: US-SA-2021SA396931

PATIENT
  Age: 61 Year
  Sex: Female

DRUGS (1)
  1. LEFLUNOMIDE [Suspect]
     Active Substance: LEFLUNOMIDE
     Indication: Rheumatoid arthritis
     Dosage: UNK

REACTIONS (3)
  - Chronic gastritis [Recovering/Resolving]
  - Melaena [Recovering/Resolving]
  - Blood loss anaemia [Recovering/Resolving]
